FAERS Safety Report 21928785 (Version 3)
Quarter: 2023Q1

REPORT INFORMATION
  Report Type: Other
  Country: GB (occurrence: GB)
  Receive Date: 20230131
  Receipt Date: 20230216
  Transmission Date: 20230418
  Serious: Yes (Other)
  Sender: FDA-Public Use
  Company Number: None

PATIENT

DRUGS (13)
  1. LISINOPRIL [Interacting]
     Active Substance: LISINOPRIL
     Indication: Product used for unknown indication
     Dosage: 20 MILLIGRAM, QD OVER 10 YEARS
     Route: 065
  2. ATORVASTATIN [Interacting]
     Active Substance: ATORVASTATIN
     Indication: Product used for unknown indication
     Dosage: 20 MILLIGRAM, QD OVER 10 YEARS.
     Route: 065
  3. TRAMADOL HYDROCHLORIDE [Interacting]
     Active Substance: TRAMADOL HYDROCHLORIDE
     Indication: Product used for unknown indication
     Dosage: 50 MILLIGRAM, QID
     Route: 065
     Dates: end: 20191111
  4. CLONAZEPAM [Interacting]
     Active Substance: CLONAZEPAM
     Indication: Product used for unknown indication
     Dosage: 0.5 MILLIGRAM, QID OVER 10 YEARS.
     Route: 065
     Dates: end: 20191111
  5. SERTRALINE [Interacting]
     Active Substance: SERTRALINE HYDROCHLORIDE
     Indication: Product used for unknown indication
     Dosage: 100 MILLIGRAM, BID, MORNING AND EVENING, OVER 10 YEARS.
     Route: 065
  6. ALLOPURINOL [Interacting]
     Active Substance: ALLOPURINOL
     Indication: Product used for unknown indication
     Dosage: 300 MILLIGRAM, QD, OVER 10 YEARS.
     Route: 065
  7. GABAPENTIN [Interacting]
     Active Substance: GABAPENTIN
     Indication: Product used for unknown indication
     Dosage: 300 MILLIGRAM, 4 DOSES 3 TIMES A DAY = 3,600MG, OVER 10 YEARS.
     Route: 065
  8. ATENOLOL [Interacting]
     Active Substance: ATENOLOL
     Indication: Product used for unknown indication
     Dosage: 100 MILLIGRAM, QD, OVER 10 YEARS.
     Route: 065
  9. AMLODIPINE [Interacting]
     Active Substance: AMLODIPINE BESYLATE
     Indication: Product used for unknown indication
     Dosage: 10 MILLIGRAM, QD, OVER 10 YEARS.
     Route: 065
  10. ISOSORBIDE MONONITRATE [Interacting]
     Active Substance: ISOSORBIDE MONONITRATE
     Indication: Product used for unknown indication
     Dosage: 40 MILLIGRAM, BID MORNING AND EVENING, OVER 10 YEARS.
     Route: 065
  11. ASPIRIN [Interacting]
     Active Substance: ASPIRIN
     Indication: Product used for unknown indication
     Dosage: 75 MILLIGRAM, QD, OVER 10 YEARS.
     Route: 065
  12. BACLOFEN [Interacting]
     Active Substance: BACLOFEN
     Indication: Product used for unknown indication
     Dosage: 10 MILLIGRAM, QID, OVER 10 YEARS.
     Route: 065
     Dates: end: 20191111
  13. NITROGLYCERIN [Interacting]
     Active Substance: NITROGLYCERIN
     Indication: Product used for unknown indication
     Dosage: WHEN NEEDED
     Route: 065

REACTIONS (10)
  - Confusion postoperative [Unknown]
  - Agitation postoperative [Unknown]
  - Abnormal dreams [Unknown]
  - Visual impairment [Unknown]
  - Headache [Unknown]
  - Coordination abnormal [Unknown]
  - Muscle spasms [Unknown]
  - Insomnia [Unknown]
  - Depressed mood [Unknown]
  - Drug interaction [Unknown]
